FAERS Safety Report 26025836 (Version 1)
Quarter: 2025Q4

REPORT INFORMATION
  Report Type: Spontaneous
  Country: EU (occurrence: EU)
  Receive Date: 20251111
  Receipt Date: 20251111
  Transmission Date: 20260118
  Serious: Yes (Other)
  Sender: MYLAN
  Company Number: EU-KRKA-LV2025K19023LIT

PATIENT
  Age: 73 Year
  Sex: Female

DRUGS (2)
  1. METOPROLOL [Suspect]
     Active Substance: METOPROLOL
     Indication: Palpitations
     Dosage: 50 MILLIGRAM, QD (50 MG, 1X PER DAY)
  2. METOPROLOL [Suspect]
     Active Substance: METOPROLOL
     Indication: Palpitations
     Dosage: 75 MILLIGRAM, QD (75 MG, PER DAY, 50 MG (MORNING) AND 25 MG (EVENING) )
     Dates: start: 202212

REACTIONS (1)
  - Syncope [Unknown]

NARRATIVE: CASE EVENT DATE: 20240201
